FAERS Safety Report 6004977-2 (Version None)
Quarter: 2008Q4

REPORT INFORMATION
  Report Type: 
  Country: None (occurrence: None)
  Receive Date: 20081216
  Receipt Date: 20081205
  Transmission Date: 20090506
  Serious: Yes (Other)
  Sender: FDA-Public Use
  Company Number: PHEH2008US10864

PATIENT
  Sex: Female

DRUGS (8)
  1. RECLAST [Suspect]
     Indication: OSTEOPOROSIS
     Dosage: 5 MG, UNK
     Dates: start: 20081028
  2. ASPIRIN [Concomitant]
     Dosage: 81 MG, UNK
  3. CALCIUM WITH VITAMIN D [Concomitant]
  4. FOLIC ACID [Concomitant]
     Dosage: 1 MG, TID
  5. HYDROCHLOROTHIAZIDE [Concomitant]
     Dosage: 25 MG, QD
  6. LOPRESSOR [Concomitant]
     Dosage: 50 MG, BID
  7. MAVIK [Concomitant]
     Dosage: 4 MG, QD
  8. MIACALCIN [Concomitant]

REACTIONS (4)
  - HEART RATE IRREGULAR [None]
  - MUSCULAR WEAKNESS [None]
  - MUSCULOSKELETAL PAIN [None]
  - MYALGIA [None]
